FAERS Safety Report 11809881 (Version 1)
Quarter: 2015Q4

REPORT INFORMATION
  Report Type: Spontaneous
  Country: US (occurrence: None)
  Receive Date: 20151207
  Receipt Date: 20151207
  Transmission Date: 20160305
  Serious: Yes (Life-Threatening, Other)
  Sender: FDA-Public Use
  Company Number: None

PATIENT
  Age: 52 Year
  Sex: Male
  Weight: 97.52 kg

DRUGS (3)
  1. ZOLPIDEM [Suspect]
     Active Substance: ZOLPIDEM\ZOLPIDEM TARTRATE
     Indication: INSOMNIA
     Dosage: 1-2 PILLS
     Route: 048
  2. CPAP [Concomitant]
     Active Substance: DEVICE
  3. OMPEPRAZOLE [Concomitant]

REACTIONS (7)
  - Aggression [None]
  - Scratch [None]
  - Abnormal behaviour [None]
  - Pain [None]
  - Incoherent [None]
  - Contusion [None]
  - Road traffic accident [None]

NARRATIVE: CASE EVENT DATE: 20151205
